FAERS Safety Report 5229072-1 (Version None)
Quarter: 2007Q1

REPORT INFORMATION
  Report Type: 
  Country: None (occurrence: None)
  Receive Date: 20061201
  Receipt Date: 20061109
  Transmission Date: 20070707
  Serious: No
  Sender: FDA-Public Use
  Company Number: US200608002961

PATIENT
  Age: 55 Year
  Sex: Female

DRUGS (5)
  1. STRATTERA [Suspect]
     Indication: DEPRESSION
     Dosage: 50 MG
     Dates: start: 20040101
  2. CYMBALTA [Suspect]
     Indication: DEPRESSION
     Dates: start: 20050101
  3. PROVIGIL [Concomitant]
  4. KLONOPIN [Concomitant]
  5. FLUOXETINE [Concomitant]

REACTIONS (7)
  - DISTURBANCE IN ATTENTION [None]
  - ENDOMETRIAL HYPERPLASIA [None]
  - HYPERTENSION [None]
  - NAUSEA [None]
  - OVERWEIGHT [None]
  - PSYCHIATRIC SYMPTOM [None]
  - TINNITUS [None]
